FAERS Safety Report 6959276-9 (Version None)
Quarter: 2010Q3

REPORT INFORMATION
  Report Type: 
  Country: None (occurrence: None)
  Receive Date: 20100831
  Receipt Date: 20100823
  Transmission Date: 20110219
  Serious: No
  Sender: FDA-Public Use
  Company Number: US-PFIZER INC-2010106781

PATIENT
  Sex: Female

DRUGS (2)
  1. ZOLOFT [Suspect]
     Indication: POST-TRAUMATIC STRESS DISORDER
     Dosage: UNK
  2. ZOLOFT [Suspect]
     Dosage: 100 MG, UNK

REACTIONS (2)
  - DRUG EFFECT DECREASED [None]
  - DRUG INEFFECTIVE [None]
